FAERS Safety Report 22310379 (Version 2)
Quarter: 2023Q2

REPORT INFORMATION
  Report Type: Spontaneous
  Country: NL (occurrence: NL)
  Receive Date: 20230511
  Receipt Date: 20230526
  Transmission Date: 20230721
  Serious: Yes (Hospitalization)
  Sender: FDA-Public Use
  Company Number: NL-TEVA-2023-NL-2885557

PATIENT
  Age: 69 Year
  Sex: Male

DRUGS (4)
  1. MYCOPHENOLATE MOFETIL [Interacting]
     Active Substance: MYCOPHENOLATE MOFETIL
     Indication: Prophylaxis against transplant rejection
     Dosage: 1500 MILLIGRAM DAILY;
     Route: 065
     Dates: start: 2021
  2. ACYCLOVIR [Interacting]
     Active Substance: ACYCLOVIR
     Indication: Meningoencephalitis herpetic
     Dosage: 20 MG/KG DAILY;
     Route: 065
     Dates: start: 2021
  3. ACYCLOVIR [Interacting]
     Active Substance: ACYCLOVIR
     Dosage: 800 MILLIGRAM DAILY;
     Route: 065
     Dates: start: 2021
  4. ACYCLOVIR [Interacting]
     Active Substance: ACYCLOVIR
     Dosage: 500 MILLIGRAM DAILY;
     Route: 065
     Dates: start: 2021

REACTIONS (6)
  - Myoclonus [Recovered/Resolved]
  - Neurotoxicity [Unknown]
  - Confusional state [Not Recovered/Not Resolved]
  - Antiviral drug level above therapeutic [Recovered/Resolved]
  - Drug interaction [Unknown]
  - Overdose [Unknown]

NARRATIVE: CASE EVENT DATE: 20210101
